FAERS Safety Report 8953077 (Version 2)
Quarter: 2013Q2

REPORT INFORMATION
  Report Type: Spontaneous
  Country: DE (occurrence: DE)
  Receive Date: 20121205
  Receipt Date: 20130420
  Transmission Date: 20140414
  Serious: Yes (Other)
  Sender: FDA-Public Use
  Company Number: DE-B.I. PHARMACEUTICALS,INC./RIDGEFIELD-2012-DE-02946DE

PATIENT
  Age: 69 Year
  Sex: Female
  Weight: 110 kg

DRUGS (7)
  1. PRADAXA [Suspect]
     Indication: ATRIAL FIBRILLATION
     Dates: start: 20121114, end: 20121116
  2. ENALAPRIL [Concomitant]
  3. AMLODIPIN [Concomitant]
  4. SIMBAVASTATIN [Concomitant]
  5. BISOPROLO [Concomitant]
  6. TOREEN [Concomitant]
  7. XPRAMID [Concomitant]

REACTIONS (2)
  - Colon cancer [Unknown]
  - Intestinal haemorrhage [Recovered/Resolved]
